FAERS Safety Report 9230618 (Version 3)
Quarter: 2013Q4

REPORT INFORMATION
  Report Type: Spontaneous
  Country: US (occurrence: None)
  Receive Date: 20121031
  Receipt Date: 20131226
  Transmission Date: 20140711
  Serious: Yes (Other)
  Sender: FDA-Public Use
  Company Number: PHEH2012US016343

PATIENT
  Age: 51 Year
  Sex: Female
  Weight: 83.9 kg

DRUGS (14)
  1. GILENYA (FTY)CAPSULE, 0.5MG [Suspect]
     Indication: MULTIPLE SCLEROSIS
     Route: 048
     Dates: start: 20120817
  2. EVISTA (RALOXIFENE HYDROCHLORIDE) [Concomitant]
  3. BACLOFEN (BACLOFEN) [Concomitant]
  4. AMANTADINE (AMANTADINE) [Concomitant]
  5. VIIBRYD (VILAZODONE HYDROCHLORIDE) [Concomitant]
  6. ZANTAC (RANITIDINE HYDROCHLORIDE) [Concomitant]
  7. RANITIDINE (RANITIDINE) [Concomitant]
  8. FAMPRIDINE (FAMPRIDINE) [Concomitant]
  9. VESICARE (SOLIFENACIN SUCCINATE) [Concomitant]
  10. VIT D (ERGOCALCIFEROL) [Concomitant]
  11. ZYRTEC (CETIRIZINE HYDROCHLORIDE) [Concomitant]
  12. ALG (ANTILYMPHOCYTE IMMUNOGLOBULIN (HORSE)) [Concomitant]
  13. CONGEST (ESTROGENS CONJUGATED) [Concomitant]
  14. CALCIT (CALCITRIOL) [Concomitant]

REACTIONS (4)
  - Feeling jittery [None]
  - Hypoaesthesia [None]
  - Paraesthesia [None]
  - Muscle spasticity [None]
